FAERS Safety Report 7630777-3 (Version None)
Quarter: 2011Q3

REPORT INFORMATION
  Report Type: 
  Country: None (occurrence: None)
  Receive Date: 20110722
  Receipt Date: 20110718
  Transmission Date: 20111222
  Serious: Yes (Other)
  Sender: FDA-Public Use
  Company Number: US-AMGEN-QUU391408

PATIENT
  Age: 46 Year
  Sex: Female
  Weight: 50.4 kg

DRUGS (2)
  1. ARANESP [Suspect]
     Dosage: UNK UNK, UNK
     Dates: start: 20090701
  2. PROCRIT [Suspect]
     Indication: DIALYSIS
     Dosage: UNK UNK, UNK
     Dates: start: 20080101, end: 20100211

REACTIONS (4)
  - EYE SWELLING [None]
  - SWELLING FACE [None]
  - HAEMOGLOBIN DECREASED [None]
  - DRUG HYPERSENSITIVITY [None]
